FAERS Safety Report 8146941-3 (Version None)
Quarter: 2012Q1

REPORT INFORMATION
  Report Type: 
  Country: None (occurrence: None)
  Receive Date: 20120217
  Receipt Date: 20120208
  Transmission Date: 20120608
  Serious: Yes (Other)
  Sender: FDA-Public Use
  Company Number: US-ASTRAZENECA-2012SE08894

PATIENT
  Age: 53 Year
  Sex: Female
  Weight: 83.9 kg

DRUGS (10)
  1. DURAGESIC-100 [Concomitant]
     Dosage: 50 MG EVERY 3 DAYS ONCE
  2. SEROQUEL XR [Suspect]
     Indication: BIPOLAR I DISORDER
     Route: 048
     Dates: start: 20040101
  3. PERCOCET [Concomitant]
     Dosage: 10/325 MG BID
  4. SIMVASTATIN [Concomitant]
  5. LEVOTHYROXINE SODIUM [Concomitant]
  6. SEROQUEL XR [Suspect]
     Route: 048
     Dates: start: 20120101
  7. SEROQUEL XR [Suspect]
     Route: 048
     Dates: start: 20120101
  8. LISINOPRIL AND HYDROCHLOROTHIAZIDE [Concomitant]
     Indication: BLOOD PRESSURE INCREASED
     Dosage: 10/12.5 MG DAILY
     Route: 048
  9. DIAZEPAM [Concomitant]
     Dosage: 5 MG BID
  10. SEROQUEL XR [Suspect]
     Indication: BIPOLAR DISORDER
     Route: 048
     Dates: start: 20040101

REACTIONS (3)
  - VERBAL ABUSE [None]
  - AGGRESSION [None]
  - DRUG DOSE OMISSION [None]
